FAERS Safety Report 4821618-8 (Version None)
Quarter: 2005Q4

REPORT INFORMATION
  Report Type: 
  Country: None (occurrence: None)
  Receive Date: 20051107
  Receipt Date: 20031215
  Transmission Date: 20060501
  Serious: Yes (Hospitalization, Other)
  Sender: FDA-Public Use
  Company Number: US-MERCK-0312USA01725

PATIENT
  Age: 47 Year
  Sex: Male
  Weight: 86 kg

DRUGS (4)
  1. VIOXX [Suspect]
     Indication: BACK PAIN
     Route: 048
     Dates: start: 20001025, end: 20020101
  2. VIOXX [Suspect]
     Indication: ARTHRALGIA
     Route: 048
     Dates: start: 20001025, end: 20020101
  3. [THERAPY UNSPECIFIED] [Concomitant]
     Route: 065
  4. TYLENOL W/ CODEINE NO. 3 [Concomitant]
     Route: 065

REACTIONS (27)
  - BACK DISORDER [None]
  - BALANCE DISORDER [None]
  - BENIGN PROSTATIC HYPERPLASIA [None]
  - BLOOD TRIGLYCERIDES INCREASED [None]
  - CEREBROVASCULAR ACCIDENT [None]
  - DEPRESSION [None]
  - DYSPEPSIA [None]
  - EYE DISORDER [None]
  - FACET JOINT SYNDROME [None]
  - FIBROMYALGIA [None]
  - GAIT DISTURBANCE [None]
  - HYPOAESTHESIA [None]
  - INSOMNIA [None]
  - INTERVERTEBRAL DISC PROTRUSION [None]
  - JOINT DISLOCATION [None]
  - LUMBAR RADICULOPATHY [None]
  - NAUSEA [None]
  - NECK PAIN [None]
  - OEDEMA [None]
  - OEDEMA PERIPHERAL [None]
  - POST LAMINECTOMY SYNDROME [None]
  - SKIN PAPILLOMA [None]
  - SLEEP APNOEA SYNDROME [None]
  - SLEEP DISORDER [None]
  - SPINAL CORD DISORDER [None]
  - TACHYCARDIA [None]
  - VOMITING [None]
